FAERS Safety Report 24357475 (Version 1)
Quarter: 2024Q3

REPORT INFORMATION
  Report Type: Spontaneous
  Country: GB (occurrence: None)
  Receive Date: 20240923
  Receipt Date: 20240923
  Transmission Date: 20241016
  Serious: Yes (Other)
  Sender: Public
  Company Number: None

PATIENT
  Age: 44 Year
  Sex: Female
  Weight: 71 kg

DRUGS (1)
  1. PERMETHRIN [Suspect]
     Active Substance: PERMETHRIN
     Indication: Acarodermatitis
     Dosage: OTHER QUANTITY : 30 1?OTHER FREQUENCY : 7 DAYS?
     Route: 061
     Dates: start: 20240923

REACTIONS (2)
  - Asthma [None]
  - Throat tightness [None]

NARRATIVE: CASE EVENT DATE: 20240923
